FAERS Safety Report 4534659-5 (Version None)
Quarter: 2004Q4

REPORT INFORMATION
  Report Type: 
  Country: None (occurrence: None)
  Receive Date: 20041214
  Receipt Date: 20040730
  Transmission Date: 20050328
  Serious: No
  Sender: FDA-Public Use
  Company Number: USA040774120

PATIENT
  Age: 52 Year
  Sex: Male
  Weight: 159 kg

DRUGS (5)
  1. CIALIS [Suspect]
     Indication: ERECTILE DYSFUNCTION
  2. HYZAAR [Concomitant]
  3. TRICOR [Concomitant]
  4. UNSPECIFIED DIURETIC PILL [Concomitant]
  5. POTASSIUM CHLORIDE [Concomitant]

REACTIONS (3)
  - DRUG INEFFECTIVE [None]
  - ERECTILE DYSFUNCTION [None]
  - THERAPEUTIC RESPONSE DECREASED [None]
